FAERS Safety Report 22305404 (Version 2)
Quarter: 2023Q2

REPORT INFORMATION
  Report Type: Spontaneous
  Country: PL (occurrence: PL)
  Receive Date: 20230510
  Receipt Date: 20230519
  Transmission Date: 20230721
  Serious: Yes (Hospitalization, Other)
  Sender: FDA-Public Use
  Company Number: None

PATIENT
  Age: 64 Year
  Sex: Female

DRUGS (8)
  1. OMEPRAZOLE [Interacting]
     Active Substance: OMEPRAZOLE
     Indication: Atrial fibrillation
     Dosage: 40 MG PER DAY
     Route: 048
  2. ZOLPIDEM TARTRATE [Suspect]
     Active Substance: ZOLPIDEM TARTRATE
     Indication: Sleep disorder
     Dosage: 10 MILLIGRAM, QD 30 MINUTES BEFORE BEDTIME
  3. METOPROLOL [Interacting]
     Active Substance: METOPROLOL
     Indication: Atrial fibrillation
     Dosage: 100 MG/DAY
     Route: 048
  4. DOXYLAMINE SUCCINATE [Interacting]
     Active Substance: DOXYLAMINE SUCCINATE
     Indication: Depression
     Dosage: 25 MG (30 MINUTES BEFORE THE PLANNED BEDTIME)
     Route: 048
  5. RIVAROXABAN [Concomitant]
     Active Substance: RIVAROXABAN
     Indication: Atrial fibrillation
     Dosage: 20 MG PER DAY
     Route: 048
  6. PROPAFENONE [Interacting]
     Active Substance: PROPAFENONE
     Indication: Atrial fibrillation
     Dosage: 450 MG/DAY
     Route: 048
  7. PAROXETINE [Interacting]
     Active Substance: PAROXETINE
     Indication: Depression
     Dosage: 20 MG/D,30 MINUTES BEFORE THE PLANNED BEDTIME
     Route: 048
  8. DOXYLAMINE [Interacting]
     Active Substance: DOXYLAMINE
     Indication: Insomnia
     Dosage: 25 MG (30 MINUTES BEFORE BEDTIME)

REACTIONS (7)
  - Somnolence [Unknown]
  - Insomnia [Recovering/Resolving]
  - Abnormal dreams [Recovering/Resolving]
  - Myalgia [Unknown]
  - Chromaturia [Unknown]
  - Rhabdomyolysis [Unknown]
  - Acute kidney injury [Unknown]
